FAERS Safety Report 15227317 (Version 2)
Quarter: 2018Q3

REPORT INFORMATION
  Report Type: Spontaneous
  Country: ES (occurrence: ES)
  Receive Date: 20180801
  Receipt Date: 20180809
  Transmission Date: 20181010
  Serious: Yes (Disabling)
  Sender: FDA-Public Use
  Company Number: ES-009507513-1807ESP010685

PATIENT
  Age: 81 Year
  Sex: Male

DRUGS (2)
  1. SINEMET PLUS RETARD [Suspect]
     Active Substance: CARBIDOPA\LEVODOPA
     Dosage: DOSE REDUCED TO HALF PILL, THREE TIMES A DAY (TID)
     Route: 048
     Dates: start: 20180724, end: 2018
  2. SINEMET PLUS RETARD [Suspect]
     Active Substance: CARBIDOPA\LEVODOPA
     Indication: PARKINSON^S DISEASE
     Dosage: 3 TABLETS (DF), PER DAY (QD) (BREAKFAST, LUNCH AND DINNER)
     Route: 048
     Dates: start: 20180620, end: 20180723

REACTIONS (4)
  - Pyrexia [Recovering/Resolving]
  - Drug prescribing error [Unknown]
  - Wrong dose [Unknown]
  - Gout [Recovering/Resolving]

NARRATIVE: CASE EVENT DATE: 2018
